FAERS Safety Report 4487723-3 (Version None)
Quarter: 2004Q4

REPORT INFORMATION
  Report Type: 
  Country: None (occurrence: None)
  Receive Date: 20041027
  Receipt Date: 20041027
  Transmission Date: 20050328
  Serious: Yes (Hospitalization)
  Sender: FDA-Public Use
  Company Number: None

PATIENT
  Age: 53 Year
  Sex: Male

DRUGS (1)
  1. DAPTOMYCIN IV [Suspect]
     Indication: INFECTION
     Dosage: 500 MG IV QD
     Route: 042

REACTIONS (1)
  - RHABDOMYOLYSIS [None]
